FAERS Safety Report 21751989 (Version 1)
Quarter: 2022Q4

REPORT INFORMATION
  Report Type: Spontaneous
  Country: DE (occurrence: DE)
  Receive Date: 20221220
  Receipt Date: 20221220
  Transmission Date: 20230112
  Serious: Yes (Hospitalization, Other)
  Sender: FDA-Public Use
  Company Number: DE-JNJFOC-20221230782

PATIENT
  Sex: Male

DRUGS (11)
  1. IBUPROFEN [Suspect]
     Active Substance: IBUPROFEN
     Indication: Axial spondyloarthritis
     Dosage: 600 MG, QD (1 DAY PER WEEK)
     Route: 065
     Dates: start: 20210915, end: 20220201
  2. COSENTYX [Suspect]
     Active Substance: SECUKINUMAB
     Indication: Axial spondyloarthritis
     Dosage: 300 MG, QMO, ROUTE INJECTION NOT OTHERWISE SPECIFIED
     Route: 050
     Dates: start: 20210416, end: 20211020
  3. COSENTYX [Suspect]
     Active Substance: SECUKINUMAB
     Dosage: 150 MG, QMO, ROUTE- INJECTION NOT OTHERWISE SPECIFIED
     Route: 050
     Dates: start: 20210416
  4. COSENTYX [Suspect]
     Active Substance: SECUKINUMAB
     Dosage: 300 MG, ROUTE- INJECTION NOT OTHERWISE SPECIFIED
     Route: 050
     Dates: start: 20201027, end: 20210121
  5. COSENTYX [Suspect]
     Active Substance: SECUKINUMAB
     Dosage: 300 MG, ROUTE- INJECTION NOT OTHERWISE SPECIFIED
     Route: 050
     Dates: start: 20200922, end: 20200929
  6. OMEPRAZOL [OMEPRAZOLE MAGNESIUM] [Concomitant]
     Indication: Product used for unknown indication
     Dosage: 20 MG, UNKNOWN
     Route: 065
  7. DULOXETINE [Concomitant]
     Active Substance: DULOXETINE
     Indication: Product used for unknown indication
     Dosage: 30 MG, UNKNOWN
     Route: 065
  8. RAMIPRIL;VALSARTAN [Concomitant]
     Indication: Product used for unknown indication
     Dosage: 5 MG, UNKNOWN
     Route: 065
  9. MIRTAZAPINE [Concomitant]
     Active Substance: MIRTAZAPINE
     Indication: Product used for unknown indication
     Dosage: 30 MG, UNKNOWN
     Route: 065
  10. BISOPROLOL [Concomitant]
     Active Substance: BISOPROLOL
     Indication: Product used for unknown indication
     Dosage: 2.5 MG, UNKNOWN
     Route: 065
  11. AMLODIPIN [AMLODIPINE MESILATE] [Concomitant]
     Indication: Product used for unknown indication
     Dosage: 5 MG, UNKNOWN
     Route: 065

REACTIONS (3)
  - Psoriatic arthropathy [Not Recovered/Not Resolved]
  - Sleep apnoea syndrome [Unknown]
  - Psoriasis [Not Recovered/Not Resolved]

NARRATIVE: CASE EVENT DATE: 20211014
